FAERS Safety Report 9480989 (Version 1)
Quarter: 2013Q3

REPORT INFORMATION
  Report Type: Report from Study
  Country: DE (occurrence: DE)
  Receive Date: 20130828
  Receipt Date: 20130828
  Transmission Date: 20140515
  Serious: Yes (Hospitalization)
  Sender: FDA-Public Use
  Company Number: DE-ROCHE-1267212

PATIENT
  Sex: Female
  Weight: 87 kg

DRUGS (1)
  1. HERCEPTIN [Suspect]
     Indication: BREAST CANCER
     Route: 065
     Dates: start: 20121213, end: 20130327

REACTIONS (1)
  - Haemorrhage intracranial [Recovered/Resolved with Sequelae]
